FAERS Safety Report 6279165-5 (Version None)
Quarter: 2009Q3

REPORT INFORMATION
  Report Type: 
  Country: None (occurrence: None)
  Receive Date: 20090723
  Receipt Date: 20090709
  Transmission Date: 20100115
  Serious: Yes (Other)
  Sender: FDA-Public Use
  Company Number: DE-ROCHE-637400

PATIENT
  Sex: Female
  Weight: 79 kg

DRUGS (1)
  1. XELODA [Suspect]
     Route: 048
     Dates: start: 20071201

REACTIONS (2)
  - COMPUTERISED TOMOGRAM ABNORMAL [None]
  - LUNG DISORDER [None]
